FAERS Safety Report 19229481 (Version 1)
Quarter: 2021Q2

REPORT INFORMATION
  Report Type: Spontaneous
  Country: US (occurrence: US)
  Receive Date: 20210507
  Receipt Date: 20210507
  Transmission Date: 20210717
  Serious: No
  Sender: FDA-Public Use
  Company Number: US-AMGEN-USASP2021066459

PATIENT
  Age: 76 Year
  Sex: Male

DRUGS (1)
  1. REPATHA [Suspect]
     Active Substance: EVOLOCUMAB
     Indication: BLOOD CHOLESTEROL INCREASED
     Dosage: 420 MILLIGRAM, EVERY 5 WEEKS
     Route: 058
     Dates: start: 2018

REACTIONS (2)
  - Injection site extravasation [Unknown]
  - Injection site pain [Unknown]

NARRATIVE: CASE EVENT DATE: 20210326
